FAERS Safety Report 9365432 (Version 1)
Quarter: 2013Q2

REPORT INFORMATION
  Report Type: Spontaneous
  Country: US (occurrence: None)
  Receive Date: 20130624
  Receipt Date: 20130624
  Transmission Date: 20140414
  Serious: Yes (Other)
  Sender: FDA-Public Use
  Company Number: None

PATIENT
  Age: 57 Year
  Sex: Female
  Weight: 101.15 kg

DRUGS (7)
  1. SEROQUEL (QUETIAPINE), 50 MG [Suspect]
     Indication: PSYCHIATRIC SYMPTOM
     Dosage: 100MG + 400MG?100MG BID + 400MG HS?100MG BID + 400MG HS?BY MOUTH
     Route: 048
     Dates: start: 201110, end: 201206
  2. ADVAIR [Concomitant]
  3. ALLBUTEROL [Concomitant]
  4. ENOLOPRIL [Concomitant]
  5. SPIRIVA [Concomitant]
  6. SIMVASTATIN [Concomitant]
  7. PANTOPAZOLE [Concomitant]

REACTIONS (3)
  - Nervousness [None]
  - Malaise [None]
  - Product substitution issue [None]
